FAERS Safety Report 22196544 (Version 3)
Quarter: 2024Q3

REPORT INFORMATION
  Report Type: Spontaneous
  Country: BR (occurrence: BR)
  Receive Date: 20230411
  Receipt Date: 20240914
  Transmission Date: 20241017
  Serious: Yes (Other)
  Sender: CELLTRION
  Company Number: BR-CELLTRION INC.-2022BR019916

PATIENT

DRUGS (13)
  1. INFLIXIMAB [Suspect]
     Active Substance: INFLIXIMAB
     Indication: Crohn^s disease
     Dosage: 6 AMPOULES EVERY 2 MONTHS
     Route: 042
     Dates: start: 20220722
  2. INFLIXIMAB [Suspect]
     Active Substance: INFLIXIMAB
     Dosage: 6 AMPOULES EVERY 2 MONTHS
     Route: 042
     Dates: start: 20230705
  3. INFLIXIMAB [Suspect]
     Active Substance: INFLIXIMAB
     Dosage: 6 AMPOULES EVERY 2 MONTHS
     Route: 042
     Dates: start: 20220728
  4. LOSARTAN [Concomitant]
     Active Substance: LOSARTAN\LOSARTAN POTASSIUM
     Indication: Hypertension
     Dosage: 1 CAPSULE PER DAY
     Route: 048
     Dates: start: 2016
  5. FUROSEMIDE [Concomitant]
     Active Substance: FUROSEMIDE
     Dosage: 2 CAPSULE PER DAY
     Route: 048
     Dates: start: 2016
  6. SPIRONOLACTONE [Concomitant]
     Active Substance: SPIRONOLACTONE
     Dosage: 1 CAPSULE PER DAY
     Route: 048
     Dates: start: 2016
  7. CARVEDILOL [Concomitant]
     Active Substance: CARVEDILOL
     Dosage: 2 CAPSULE EVERY 8 HOURS
     Route: 048
     Dates: start: 2016
  8. ATORVASTATIN [Concomitant]
     Active Substance: ATORVASTATIN
     Indication: Blood cholesterol
     Dosage: 2 CAPSULE PER DAY
     Route: 048
     Dates: start: 2016
  9. METFORMIN [Concomitant]
     Active Substance: METFORMIN HYDROCHLORIDE
     Indication: Diabetes mellitus
     Dosage: 3 CAPSULE PER DAY
     Route: 048
     Dates: start: 2016
  10. VARFARINS [Concomitant]
     Dosage: 1 CAPSULE PER DAY
     Route: 048
     Dates: start: 2016
  11. AMITRIPTYLINE [Concomitant]
     Active Substance: AMITRIPTYLINE
     Indication: Stress
     Dosage: 1 CAPSULE PER DAY
     Route: 048
     Dates: start: 2016
  12. AMITRIPTYLINE [Concomitant]
     Active Substance: AMITRIPTYLINE
     Indication: Anxiety
  13. MONOCORDIL [Concomitant]
     Active Substance: ISOSORBIDE MONONITRATE
     Dosage: 20 MILLIGRAM
     Route: 048
     Dates: start: 2016

REACTIONS (6)
  - Crohn^s disease [Unknown]
  - Arrhythmia [Unknown]
  - Chronic obstructive pulmonary disease [Unknown]
  - Diarrhoea [Unknown]
  - Pyrexia [Unknown]
  - Intentional dose omission [Unknown]

NARRATIVE: CASE EVENT DATE: 20230329
